FAERS Safety Report 9969596 (Version 1)
Quarter: 2014Q1

REPORT INFORMATION
  Report Type: Report from Study
  Country: DE (occurrence: DE)
  Receive Date: 20140306
  Receipt Date: 20140306
  Transmission Date: 20141002
  Serious: Yes (Hospitalization, Other)
  Sender: FDA-Public Use
  Company Number: DE-ROCHE-1356245

PATIENT
  Age: 71 Year
  Sex: Female

DRUGS (15)
  1. RITUXIMAB [Suspect]
     Indication: RHEUMATOID ARTHRITIS
     Route: 065
     Dates: start: 20100223
  2. RITUXIMAB [Suspect]
     Route: 065
     Dates: start: 20110301
  3. LEFLUNOMID [Suspect]
     Indication: PRODUCT USED FOR UNKNOWN INDICATION
     Route: 065
     Dates: start: 20100223
  4. LEFLUNOMID [Suspect]
     Route: 065
     Dates: start: 20100415
  5. LEFLUNOMID [Suspect]
     Route: 065
     Dates: start: 20100823
  6. LEFLUNOMID [Suspect]
     Route: 065
     Dates: start: 20110224
  7. LEFLUNOMID [Suspect]
     Route: 065
     Dates: start: 20110922
  8. LEFLUNOMID [Suspect]
     Route: 065
     Dates: start: 20120525
  9. LEFLUNOMID [Suspect]
     Route: 065
     Dates: start: 20120906
  10. LEFLUNOMID [Suspect]
     Route: 065
     Dates: start: 20130219
  11. LEFLUNOMID [Suspect]
     Route: 065
     Dates: start: 20130926
  12. METHOTREXAT [Suspect]
     Indication: PRODUCT USED FOR UNKNOWN INDICATION
     Dosage: 19/FEB/2013
     Route: 065
     Dates: start: 20120522
  13. METHOTREXAT [Suspect]
     Route: 065
     Dates: start: 20120906
  14. METHOTREXAT [Suspect]
     Route: 065
     Dates: start: 20130219
  15. HYDROXYCHLOROQUINE [Suspect]
     Indication: PRODUCT USED FOR UNKNOWN INDICATION
     Route: 065
     Dates: start: 20130926, end: 20130926

REACTIONS (3)
  - Pneumonia [Unknown]
  - Epistaxis [Unknown]
  - Angiopathy [Unknown]
